FAERS Safety Report 14874374 (Version 2)
Quarter: 2018Q2

REPORT INFORMATION
  Report Type: Spontaneous
  Country: US (occurrence: US)
  Receive Date: 20180510
  Receipt Date: 20180611
  Transmission Date: 20180711
  Serious: Yes (Hospitalization)
  Sender: FDA-Public Use
  Company Number: US-LEXICON PHARMACEUTICALS, INC-18-1606-00526

PATIENT
  Age: 80 Year
  Sex: Male

DRUGS (12)
  1. ALLOPURINOL. [Concomitant]
     Active Substance: ALLOPURINOL
  2. ZOSYN [Concomitant]
     Active Substance: PIPERACILLIN SODIUM\TAZOBACTAM SODIUM
  3. KEPPRA [Concomitant]
     Active Substance: LEVETIRACETAM
  4. PANTOPRAZOLE [Concomitant]
     Active Substance: PANTOPRAZOLE
  5. ATORVASTATIN [Concomitant]
     Active Substance: ATORVASTATIN
  6. SODIUM BICARBONATE. [Concomitant]
     Active Substance: SODIUM BICARBONATE
  7. TELOTRISTAT ETHYL [Suspect]
     Active Substance: TELOTRISTAT ETHYL
     Indication: CARCINOID SYNDROME
     Route: 048
     Dates: start: 20171017
  8. LISINOPRIL. [Concomitant]
     Active Substance: LISINOPRIL
  9. TORSEMIDE. [Concomitant]
     Active Substance: TORSEMIDE
  10. CARVEDILOL. [Concomitant]
     Active Substance: CARVEDILOL
  11. NYSTATIN. [Concomitant]
     Active Substance: NYSTATIN
  12. OXYCODONE [Concomitant]
     Active Substance: OXYCODONE

REACTIONS (1)
  - Gastrointestinal haemorrhage [Recovered/Resolved]

NARRATIVE: CASE EVENT DATE: 20180419
